FAERS Safety Report 12745114 (Version 1)
Quarter: 2016Q3

REPORT INFORMATION
  Report Type: Report from Study
  Country: US (occurrence: US)
  Receive Date: 20160915
  Receipt Date: 20160915
  Transmission Date: 20161109
  Serious: Yes (Hospitalization, Other)
  Sender: FDA-Public Use
  Company Number: US-ROCHE-1670301

PATIENT
  Age: 60 Year
  Sex: Female

DRUGS (7)
  1. TEMSIROLIMUS [Suspect]
     Active Substance: TEMSIROLIMUS
     Indication: CARCINOID TUMOUR
     Dosage: ON DAYS 1, 8, 15 AND 22
     Route: 042
     Dates: start: 20100118
  2. BEVACIZUMAB [Suspect]
     Active Substance: BEVACIZUMAB
     Indication: CARCINOID TUMOUR
     Dosage: (CYCLE 28 DAYS) OVER 30 TO 90 MINUTES ON DAYS 1 AND 15
     Route: 042
     Dates: start: 20100118
  3. BEVACIZUMAB [Suspect]
     Active Substance: BEVACIZUMAB
     Indication: MALIGNANT NEOPLASM OF ISLETS OF LANGERHANS
  4. BEVACIZUMAB [Suspect]
     Active Substance: BEVACIZUMAB
     Indication: HEPATOCELLULAR CARCINOMA
  5. COUMADIN [Suspect]
     Active Substance: WARFARIN SODIUM
     Indication: CARCINOID TUMOUR
     Route: 065
  6. TEMSIROLIMUS [Suspect]
     Active Substance: TEMSIROLIMUS
     Indication: HEPATOCELLULAR CARCINOMA
  7. TEMSIROLIMUS [Suspect]
     Active Substance: TEMSIROLIMUS
     Indication: MALIGNANT NEOPLASM OF ISLETS OF LANGERHANS

REACTIONS (6)
  - Lymphocyte count decreased [Unknown]
  - International normalised ratio increased [Unknown]
  - Activated partial thromboplastin time prolonged [Unknown]
  - Hypophosphataemia [Unknown]
  - Blood bilirubin increased [Unknown]
  - Abdominal pain [Unknown]

NARRATIVE: CASE EVENT DATE: 20100215
